FAERS Safety Report 14026389 (Version 2)
Quarter: 2017Q4

REPORT INFORMATION
  Report Type: Report from Study
  Country: US (occurrence: US)
  Receive Date: 20170929
  Receipt Date: 20171012
  Transmission Date: 20180321
  Serious: Yes (Hospitalization, Other)
  Sender: FDA-Public Use
  Company Number: US-TAKEDA-2017MPI007838

PATIENT
  Age: 60 Year
  Sex: Male
  Weight: 84.22 kg

DRUGS (20)
  1. CLOBETASOL PROPIONATE. [Concomitant]
     Active Substance: CLOBETASOL PROPIONATE
     Dosage: 0.05 %, UNK
  2. MAGNESIUM CHLORIDE. [Concomitant]
     Active Substance: MAGNESIUM CHLORIDE
     Dosage: 64 MG, UNK
  3. ONDANSETRON [Concomitant]
     Active Substance: ONDANSETRON
     Dosage: 4 MG, UNK
  4. OXYCODONE [Concomitant]
     Active Substance: OXYCODONE
     Dosage: 5 MG, UNK
  5. CYANOCOBALAMIN. [Concomitant]
     Active Substance: CYANOCOBALAMIN
     Dosage: 10000 UG, UNK
  6. LENALIDOMIDE [Suspect]
     Active Substance: LENALIDOMIDE
     Indication: MYELODYSPLASTIC SYNDROME
     Dosage: 50 MG, UNK
     Route: 048
     Dates: start: 20170907, end: 20170910
  7. PREDNISONE. [Concomitant]
     Active Substance: PREDNISONE
     Dosage: 10 MG, UNK
  8. ATOVAQUONE. [Concomitant]
     Active Substance: ATOVAQUONE
     Dosage: 1500 MG, UNK
  9. VELCADE [Suspect]
     Active Substance: BORTEZOMIB
     Indication: MYELODYSPLASTIC SYNDROME
     Dosage: 1.3 MG/M2, UNK
     Route: 058
     Dates: start: 20170908
  10. FOLIC ACID. [Concomitant]
     Active Substance: FOLIC ACID
     Dosage: 1 MG, UNK
  11. POSACONAZOLE [Concomitant]
     Active Substance: POSACONAZOLE
     Dosage: 300 MG, UNK
  12. LENALIDOMIDE [Suspect]
     Active Substance: LENALIDOMIDE
     Dosage: 25 MG, UNK
     Route: 048
     Dates: start: 20170912, end: 20170914
  13. VALGANCICLOVIR. [Concomitant]
     Active Substance: VALGANCICLOVIR
     Dosage: 450 MG, UNK
  14. LEVOFLOXACIN. [Concomitant]
     Active Substance: LEVOFLOXACIN
     Dosage: 500 MG, UNK
  15. NPH                                /00030513/ [Concomitant]
     Dosage: UNK
     Route: 058
  16. MULTIVITAMIN                       /07504101/ [Concomitant]
     Active Substance: VITAMINS
  17. PANTOPRAZOLE [Concomitant]
     Active Substance: PANTOPRAZOLE
     Dosage: 40 MG, UNK
  18. LORAZEPAM. [Concomitant]
     Active Substance: LORAZEPAM
     Dosage: 2 MG, UNK
  19. VANCOMYCIN [Concomitant]
     Active Substance: VANCOMYCIN
     Dosage: 125 MG, UNK
     Route: 048
  20. SERTRALINE [Concomitant]
     Active Substance: SERTRALINE HYDROCHLORIDE
     Dosage: 50 MG, UNK

REACTIONS (4)
  - Back pain [Recovering/Resolving]
  - Subclavian vein thrombosis [Unknown]
  - Urinary tract infection enterococcal [Recovering/Resolving]
  - Hypoxia [Unknown]

NARRATIVE: CASE EVENT DATE: 20170910
